FAERS Safety Report 20551072 (Version 1)
Quarter: 2022Q1

REPORT INFORMATION
  Report Type: Spontaneous
  Country: US (occurrence: US)
  Receive Date: 20220304
  Receipt Date: 20220304
  Transmission Date: 20220423
  Serious: No
  Sender: FDA-Public Use
  Company Number: US-ORGANON-O2203USA000017

PATIENT
  Sex: Female
  Weight: 59.864 kg

DRUGS (3)
  1. NEXPLANON [Suspect]
     Active Substance: ETONOGESTREL
     Indication: Contraception
     Dosage: 1 IMPLANT OF 68 MG EVERY 3 YEARS IN LEFT UPPER ARM
     Route: 059
     Dates: start: 2016, end: 20220215
  2. NEXPLANON [Concomitant]
     Active Substance: ETONOGESTREL
     Dosage: UNK
     Route: 059
     Dates: end: 2016
  3. MONO LINYAH [Concomitant]
     Indication: Contraception
     Dosage: 1 TABLET DAILY (STRENGTH: 0.25MG-35MCG)
     Route: 048
     Dates: start: 20211215

REACTIONS (6)
  - Paraesthesia [Not Recovered/Not Resolved]
  - Device issue [Recovered/Resolved]
  - Complication of device removal [Recovered/Resolved]
  - Complication associated with device [Recovered/Resolved]
  - Incorrect product administration duration [Unknown]
  - Wrong technique in product usage process [Unknown]

NARRATIVE: CASE EVENT DATE: 20190101
